FAERS Safety Report 17876155 (Version 1)
Quarter: 2020Q2

REPORT INFORMATION
  Report Type: Report from Study
  Country: IT (occurrence: IT)
  Receive Date: 20200609
  Receipt Date: 20200609
  Transmission Date: 20200714
  Serious: Yes (Hospitalization)
  Sender: FDA-Public Use
  Company Number: IT-PFIZER INC-2020222752

PATIENT
  Age: 93 Year
  Sex: Female

DRUGS (6)
  1. ESOMEPRAZOLE MAGNESIUM TRIHYDRATE [Concomitant]
     Active Substance: ESOMEPRAZOLE MAGNESIUM
  2. RAMIPRIL. [Concomitant]
     Active Substance: RAMIPRIL
  3. HEPARIN SODIUM. [Suspect]
     Active Substance: HEPARIN SODIUM
     Dates: start: 20190101, end: 20191204
  4. TALOFEN [Concomitant]
     Active Substance: PROMAZINE HYDROCHLORIDE
  5. MATRIFEN [Concomitant]
     Active Substance: FENTANYL
  6. BISOPROLOL FUMARATE. [Concomitant]
     Active Substance: BISOPROLOL FUMARATE

REACTIONS (2)
  - Anaemia [Unknown]
  - Haematuria [Unknown]

NARRATIVE: CASE EVENT DATE: 20191204
